FAERS Safety Report 23889194 (Version 4)
Quarter: 2024Q3

REPORT INFORMATION
  Report Type: Spontaneous
  Country: ZA (occurrence: ZA)
  Receive Date: 20240523
  Receipt Date: 20240704
  Transmission Date: 20241017
  Serious: Yes (Life-Threatening, Other)
  Sender: AMGEN
  Company Number: ZA-AMGEN-ZAFSP2024100802

PATIENT
  Age: 63 Year
  Sex: Female

DRUGS (1)
  1. PROLIA [Suspect]
     Active Substance: DENOSUMAB
     Indication: Osteoporosis
     Dosage: 60 MILLIGRAM
     Route: 058

REACTIONS (2)
  - Hypocalcaemia [Recovered/Resolved]
  - Haemodialysis [Unknown]

NARRATIVE: CASE EVENT DATE: 20240501
